FAERS Safety Report 6013608-7 (Version None)
Quarter: 2008Q4

REPORT INFORMATION
  Report Type: 
  Country: None (occurrence: None)
  Receive Date: 20081216
  Receipt Date: 20071105
  Transmission Date: 20090506
  Serious: Yes (Other)
  Sender: FDA-Public Use
  Company Number: US-WYE-H01185507

PATIENT
  Age: 71 Year
  Sex: Female
  Weight: 77.18 kg

DRUGS (5)
  1. EFFEXOR XR [Suspect]
     Indication: ANXIETY
     Dosage: 37.5 MG 1X PER 1 DAY, ORAL
     Route: 048
     Dates: start: 20071025, end: 20071025
  2. CECLOR [Concomitant]
  3. KLONOPIN [Concomitant]
  4. ATIVAN [Concomitant]
  5. AMBIEN [Concomitant]

REACTIONS (4)
  - EATING DISORDER [None]
  - HEADACHE [None]
  - MOVEMENT DISORDER [None]
  - UNEVALUABLE EVENT [None]
